FAERS Safety Report 8784353 (Version 2)
Quarter: 2012Q4

REPORT INFORMATION
  Report Type: 
  Country: US (occurrence: US)
  Receive Date: 20120913
  Receipt Date: 20121029
  Transmission Date: 20130627
  Serious: Yes (Other)
  Sender: FDA-Public Use
  Company Number: US-SHIRE-ALL1-2012-04137

PATIENT
  Age: 9 None
  Sex: Male
  Weight: 35.92 kg

DRUGS (2)
  1. VYVANSE [Suspect]
     Indication: ATTENTION DEFICIT/HYPERACTIVITY DISORDER
     Dosage: 70 mg, 1x/day:qd
     Route: 048
     Dates: start: 201209
  2. VYVANSE [Suspect]
     Dosage: 50 mg, 1x/day:qd
     Route: 048
     Dates: start: 20120809

REACTIONS (7)
  - Henoch-Schonlein purpura [Recovered/Resolved]
  - Viral infection [Unknown]
  - Condition aggravated [Unknown]
  - Abdominal pain [Unknown]
  - Dyspnoea [Unknown]
  - Decreased appetite [Unknown]
  - Drug prescribing error [Unknown]
